FAERS Safety Report 21327213 (Version 1)
Quarter: 2022Q3

REPORT INFORMATION
  Report Type: Spontaneous
  Country: AU (occurrence: AU)
  Receive Date: 20220913
  Receipt Date: 20220913
  Transmission Date: 20221026
  Serious: Yes (Other)
  Sender: FDA-Public Use
  Company Number: AU-BAYER-2021-200788

PATIENT

DRUGS (13)
  1. RIVAROXABAN [Suspect]
     Active Substance: RIVAROXABAN
     Indication: Atrial fibrillation
     Route: 048
  2. PSEUDOEPHEDRINE HYDROCHLORIDE [Suspect]
     Active Substance: PSEUDOEPHEDRINE HYDROCHLORIDE
     Indication: Product used for unknown indication
     Route: 065
  3. DEPO-PROVERA [Suspect]
     Active Substance: MEDROXYPROGESTERONE ACETATE
     Indication: Product used for unknown indication
     Route: 065
  4. FOLIC ACID [Concomitant]
     Active Substance: FOLIC ACID
  5. METHOTREXATE [Concomitant]
     Active Substance: METHOTREXATE
  6. SULFASALAZINE [Concomitant]
     Active Substance: SULFASALAZINE
  7. SOTALOL HYDROCHLORIDE [Concomitant]
     Active Substance: SOTALOL HYDROCHLORIDE
  8. AMITRIPTYLINE [Concomitant]
     Active Substance: AMITRIPTYLINE
  9. RAMIPRIL [Concomitant]
     Active Substance: RAMIPRIL
  10. VARENICLINE TARTRATE [Concomitant]
     Active Substance: VARENICLINE TARTRATE
  11. PANTOPRAZOLE [Concomitant]
     Active Substance: PANTOPRAZOLE
  12. PREDNISOLONE [Concomitant]
     Active Substance: PREDNISOLONE
  13. TRAMADOL [Concomitant]
     Active Substance: TRAMADOL

REACTIONS (2)
  - Hemiplegia [Recovered/Resolved]
  - Dysarthria [Recovering/Resolving]
